FAERS Safety Report 9168528 (Version 1)
Quarter: 2013Q1

REPORT INFORMATION
  Report Type: Spontaneous
  Country: DK (occurrence: DK)
  Receive Date: 20130318
  Receipt Date: 20130318
  Transmission Date: 20140127
  Serious: Yes (Other)
  Sender: FDA-Public Use
  Company Number: DK-ACTAVIS-EU-(XML)-2013-03855

PATIENT
  Age: 79 Year
  Sex: Female

DRUGS (3)
  1. METRONIDAZOLE (UNKNOWN) [Suspect]
     Indication: CLOSTRIDIUM DIFFICILE COLITIS
     Dosage: UNKNOWN
     Route: 065
  2. VANCOMYCIN HYDROCHLORIDE [Suspect]
     Indication: CLOSTRIDIUM DIFFICILE COLITIS
     Dosage: UNKNOWN
     Route: 065
  3. FLUCONAZOLE [Concomitant]
     Indication: CANDIDA INFECTION
     Dosage: UNKNOWN
     Route: 042

REACTIONS (2)
  - Infection susceptibility increased [Recovered/Resolved]
  - Drug ineffective [Not Recovered/Not Resolved]
